FAERS Safety Report 6260520-4 (Version None)
Quarter: 2009Q3

REPORT INFORMATION
  Report Type: 
  Country: None (occurrence: None)
  Receive Date: 20090708
  Receipt Date: 20090520
  Transmission Date: 20100115
  Serious: No
  Sender: FDA-Public Use
  Company Number: US-BRISTOL-MYERS SQUIBB COMPANY-14622377

PATIENT
  Age: 51 Year
  Sex: Female
  Weight: 59 kg

DRUGS (5)
  1. SINEMET [Suspect]
     Indication: PARKINSON'S DISEASE
     Dosage: 1DF: INITIAL DOSE 1TAB INCREASED TO 11/2TAB/3HR AND REDUCED TO 111/4TAB/3HR AND 1TAB/3HR
     Route: 048
  2. SINEMET CR [Suspect]
     Indication: PARKINSON'S DISEASE
     Dates: start: 20080201
  3. ROPINIROLE [Suspect]
     Dates: start: 20090201
  4. AMANTADINE HCL [Concomitant]
  5. CITALOPRAM HYDROBROMIDE [Concomitant]

REACTIONS (2)
  - DRUG DISPENSING ERROR [None]
  - DRUG INEFFECTIVE [None]
